FAERS Safety Report 7475106-3 (Version None)
Quarter: 2011Q2

REPORT INFORMATION
  Report Type: 
  Country: None (occurrence: None)
  Receive Date: 20110512
  Receipt Date: 20110426
  Transmission Date: 20111010
  Serious: No
  Sender: FDA-Public Use
  Company Number: US-B.I. PHARMACEUTICALS,INC./RIDGEFIELD-2011-BP-11828BP

PATIENT
  Age: 83 Year
  Sex: Female

DRUGS (2)
  1. METOPROLOL SUCCINATE [Concomitant]
     Indication: HYPERTENSION
     Dates: start: 20080101
  2. PRADAXA [Suspect]
     Indication: ATRIAL FIBRILLATION
     Dates: start: 20110201

REACTIONS (1)
  - CYST [None]
